FAERS Safety Report 7777254-7 (Version None)
Quarter: 2011Q3

REPORT INFORMATION
  Report Type: 
  Country: None (occurrence: None)
  Receive Date: 20110926
  Receipt Date: 20110915
  Transmission Date: 20111222
  Serious: Yes (Disabling, Other)
  Sender: FDA-Public Use
  Company Number: PHFR2011IE03728

PATIENT
  Sex: Male
  Weight: 75 kg

DRUGS (1)
  1. CLOZAPINE [Suspect]
     Indication: SCHIZOPHRENIA
     Dosage: 450 MG/DAY
     Route: 048
     Dates: start: 20090901

REACTIONS (5)
  - SINUS TACHYCARDIA [None]
  - MYALGIA [None]
  - AGITATION [None]
  - NERVOUSNESS [None]
  - MUSCULOSKELETAL DISCOMFORT [None]
